FAERS Safety Report 5744673-X (Version None)
Quarter: 2008Q2

REPORT INFORMATION
  Report Type: 
  Country: None (occurrence: None)
  Receive Date: 20080520
  Receipt Date: 20080508
  Transmission Date: 20081010
  Serious: Yes (Hospitalization, Other)
  Sender: FDA-Public Use
  Company Number: AU-PFIZER INC-2008029255

PATIENT
  Sex: Female

DRUGS (1)
  1. DOSTINEX [Suspect]
     Route: 048
     Dates: start: 20070701, end: 20080401

REACTIONS (1)
  - BENIGN INTRACRANIAL HYPERTENSION [None]
